FAERS Safety Report 21387580 (Version 2)
Quarter: 2022Q3

REPORT INFORMATION
  Report Type: Report from Study
  Country: US (occurrence: US)
  Receive Date: 20220928
  Receipt Date: 20220930
  Transmission Date: 20221027
  Serious: Yes (Other)
  Sender: FDA-Public Use
  Company Number: US-ABBVIE-4132438

PATIENT
  Sex: Male

DRUGS (3)
  1. HUMIRA [Suspect]
     Active Substance: ADALIMUMAB
     Indication: Crohn^s disease
     Route: 058
  2. PFIZER-BIONTECH COVID-19 VACCINE [Suspect]
     Active Substance: TOZINAMERAN
     Indication: COVID-19 immunisation
     Dosage: 1ST DOSE ONE IN ONCE
     Route: 030
     Dates: start: 20210529, end: 20210529
  3. PFIZER-BIONTECH COVID-19 VACCINE [Suspect]
     Active Substance: TOZINAMERAN
     Indication: COVID-19 immunisation
     Dosage: 2ND DOSE ONE IN ONCE
     Route: 030
     Dates: start: 202106, end: 202106

REACTIONS (3)
  - Colon cancer [Recovering/Resolving]
  - Needle issue [Unknown]
  - Vaccination site pain [Unknown]

NARRATIVE: CASE EVENT DATE: 20210101
